FAERS Safety Report 7125226-8 (Version None)
Quarter: 2010Q4

REPORT INFORMATION
  Report Type: 
  Country: None (occurrence: None)
  Receive Date: 20101129
  Receipt Date: 20101119
  Transmission Date: 20110411
  Serious: Yes (Other)
  Sender: FDA-Public Use
  Company Number: AU-ASTRAZENECA-2010SE48431

PATIENT
  Sex: Female

DRUGS (2)
  1. RHINOCORT [Suspect]
     Route: 045
     Dates: start: 20101006
  2. RHINOCORT [Suspect]
     Route: 045

REACTIONS (1)
  - DYSPNOEA [None]
